FAERS Safety Report 5419530-9 (Version None)
Quarter: 2007Q3

REPORT INFORMATION
  Report Type: 
  Country: None (occurrence: None)
  Receive Date: 20070817
  Receipt Date: 20070817
  Transmission Date: 20080115
  Serious: Yes (Hospitalization)
  Sender: FDA-Public Use
  Company Number: None

PATIENT
  Age: 60 Year
  Sex: Female

DRUGS (10)
  1. TAXOL [Suspect]
     Indication: ENDOMETRIAL CANCER
     Dates: start: 20060814, end: 20060821
  2. PERCOCET [Concomitant]
  3. NEURONTIN [Concomitant]
  4. LISINOPRIL [Concomitant]
  5. COLACE [Concomitant]
  6. MILK OF MAGNESIA [Concomitant]
  7. LIDODERM [Concomitant]
  8. PROCRIT [Concomitant]
  9. NPH INSULIN [Concomitant]
  10. REGULAR INSULIN [Concomitant]

REACTIONS (5)
  - BACK PAIN [None]
  - GAIT DISTURBANCE [None]
  - NAUSEA [None]
  - NEUROPATHY PERIPHERAL [None]
  - VOMITING [None]
